FAERS Safety Report 4788179-3 (Version None)
Quarter: 2005Q4

REPORT INFORMATION
  Report Type: 
  Country: None (occurrence: None)
  Receive Date: 20051003
  Receipt Date: 20050926
  Transmission Date: 20060501
  Serious: Yes (Hospitalization)
  Sender: FDA-Public Use
  Company Number: 2005-09-0875

PATIENT
  Age: 55 Year
  Sex: Male
  Weight: 68 kg

DRUGS (2)
  1. PEG-INTRON [Suspect]
     Indication: HEPATITIS C
     Dosage: 100 MCG QW; SUBCUTANEOUS
     Route: 058
     Dates: start: 20050607, end: 20050901
  2. REBETOL [Suspect]
     Indication: HEPATITIS C
     Dosage: 800 MG; ORAL
     Route: 048
     Dates: start: 20050607, end: 20050901

REACTIONS (1)
  - INTESTINAL OBSTRUCTION [None]
